FAERS Safety Report 22637259 (Version 1)
Quarter: 2023Q2

REPORT INFORMATION
  Report Type: Spontaneous
  Country: US (occurrence: None)
  Receive Date: 20230624
  Receipt Date: 20230624
  Transmission Date: 20230721
  Serious: Yes (Hospitalization)
  Sender: FDA-Public Use
  Company Number: None

PATIENT
  Sex: Female
  Weight: 73.48 kg

DRUGS (7)
  1. VERZENIO [Suspect]
     Active Substance: ABEMACICLIB
     Indication: Breast cancer female
     Dosage: 150MG TWICE DAILY ORAL?
     Route: 048
     Dates: start: 20230512
  2. ELIQUIS [Concomitant]
     Active Substance: APIXABAN
  3. FERROUS SULFATE [Concomitant]
  4. LETROZOLE [Concomitant]
  5. LOPERAMIDE [Concomitant]
     Active Substance: LOPERAMIDE
  6. LOPRESSOR HCT [Concomitant]
  7. MULTIVITAMIN [Concomitant]

REACTIONS (1)
  - Hospitalisation [None]
